FAERS Safety Report 10149204 (Version 1)
Quarter: 2014Q2

REPORT INFORMATION
  Report Type: Spontaneous
  Country: US (occurrence: US)
  Receive Date: 20140502
  Receipt Date: 20140502
  Transmission Date: 20141212
  Serious: No
  Sender: FDA-Public Use
  Company Number: US-TARO-2013P1021635

PATIENT
  Age: 60 Year
  Sex: Female
  Weight: 86.18 kg

DRUGS (2)
  1. CARBAMAZEPINE EXTENDED RELEASE TABLETS USP 200MG [Suspect]
     Route: 048
     Dates: start: 201305
  2. ABILIFY [Concomitant]

REACTIONS (4)
  - Alopecia [Not Recovered/Not Resolved]
  - Weight increased [Not Recovered/Not Resolved]
  - Rash [Not Recovered/Not Resolved]
  - Off label use [Not Recovered/Not Resolved]
